FAERS Safety Report 22601202 (Version 2)
Quarter: 2023Q2

REPORT INFORMATION
  Report Type: Spontaneous
  Country: BG (occurrence: BG)
  Receive Date: 20230614
  Receipt Date: 20230628
  Transmission Date: 20230722
  Serious: Yes (Other)
  Sender: FDA-Public Use
  Company Number: BG-BAXTER-2023BAX023628

PATIENT
  Age: 64 Year
  Sex: Female

DRUGS (4)
  1. CALCIUM CHLORIDE\POTASSIUM CHLORIDE\SODIUM CHLORIDE [Suspect]
     Active Substance: CALCIUM CHLORIDE\POTASSIUM CHLORIDE\SODIUM CHLORIDE
     Dosage: SALINE SOLUTIONS (RINGER), 1.5 MONTHS POSTOPERATIVELY FOR 10 DAYS
     Route: 065
  2. FONDAPARINUX [Concomitant]
     Active Substance: FONDAPARINUX
     Dosage: 2.5 MG FOR 10 DAYS
     Route: 065
  3. DEXAMETHASONE [Concomitant]
     Active Substance: DEXAMETHASONE
     Dosage: 2X4 MG FOR 10 DAYS
     Route: 065
  4. CEFTRIAXONE [Concomitant]
     Active Substance: CEFTRIAXONE
     Dosage: 2X2 G FOR 10 DAYS
     Route: 065

REACTIONS (1)
  - Necrosis [Unknown]
